FAERS Safety Report 7311530-7 (Version None)
Quarter: 2011Q1

REPORT INFORMATION
  Report Type: 
  Country: None (occurrence: None)
  Receive Date: 20110224
  Receipt Date: 20101217
  Transmission Date: 20110831
  Serious: Yes (Other)
  Sender: FDA-Public Use
  Company Number: A0900617A

PATIENT

DRUGS (1)
  1. ARZERRA [Suspect]
     Route: 065

REACTIONS (1)
  - THROMBOCYTOPENIA [None]
